FAERS Safety Report 15877417 (Version 1)
Quarter: 2019Q1

REPORT INFORMATION
  Report Type: Spontaneous
  Country: FR (occurrence: FR)
  Receive Date: 20190128
  Receipt Date: 20190128
  Transmission Date: 20190417
  Serious: Yes (Hospitalization, Other)
  Sender: FDA-Public Use
  Company Number: FR-TEVA-2019-FR-1003558

PATIENT
  Age: 80 Year
  Sex: Male

DRUGS (8)
  1. ALPRAZOLAM. [Concomitant]
     Active Substance: ALPRAZOLAM
  2. MACROGOL 1000 [Concomitant]
  3. PRAVASTATINE SODIQUE [Interacting]
     Active Substance: PRAVASTATIN SODIUM
     Indication: PRODUCT USED FOR UNKNOWN INDICATION
     Dosage: 20 MILLIGRAM DAILY;
     Route: 048
  4. PREVISCAN (FLUINDIONE) [Interacting]
     Active Substance: FLUINDIONE
     Indication: CEREBROVASCULAR ACCIDENT
     Dosage: 0.75 1DAY AND 0.5 THE NEXT DAY
     Route: 048
     Dates: end: 20181206
  5. RISPERDAL [Concomitant]
     Active Substance: RISPERIDONE
  6. AMLODIPINE [Concomitant]
     Active Substance: AMLODIPINE BESYLATE
  7. NORMACOL [Concomitant]
     Active Substance: HERBALS\KARAYA GUM
  8. EZETIMIBE. [Suspect]
     Active Substance: EZETIMIBE
     Indication: PRODUCT USED FOR UNKNOWN INDICATION
     Dosage: 10 MILLIGRAM DAILY;
     Route: 048

REACTIONS (3)
  - International normalised ratio increased [Not Recovered/Not Resolved]
  - Haematuria [Unknown]
  - Drug interaction [Unknown]

NARRATIVE: CASE EVENT DATE: 20181206
